FAERS Safety Report 9282585 (Version 1)
Quarter: 2013Q2

REPORT INFORMATION
  Report Type: Report from Study
  Country: SD (occurrence: SD)
  Receive Date: 20130510
  Receipt Date: 20130510
  Transmission Date: 20140414
  Serious: Yes (Other)
  Sender: FDA-Public Use
  Company Number: PHHY2013SD043080

PATIENT
  Sex: Female

DRUGS (2)
  1. GLIVEC [Suspect]
     Indication: CHRONIC MYELOID LEUKAEMIA
     Dosage: 400 MG, UNK
     Dates: start: 20120802
  2. GLIVEC [Suspect]
     Dosage: 600 MG, UNK
     Dates: start: 20120802

REACTIONS (9)
  - Splenomegaly [Unknown]
  - Megakaryocytes abnormal [Unknown]
  - Eosinophilia [Unknown]
  - White blood cell count increased [Unknown]
  - Hyperplasia [Unknown]
  - Erythropoiesis abnormal [Unknown]
  - Chronic myeloid leukaemia [Unknown]
  - Fibrosis [Unknown]
  - Therapeutic response decreased [Unknown]
